FAERS Safety Report 5485470-2 (Version None)
Quarter: 2007Q4

REPORT INFORMATION
  Report Type: 
  Country: None (occurrence: None)
  Receive Date: 20071015
  Receipt Date: 20071009
  Transmission Date: 20080405
  Serious: Yes (Death, Hospitalization, Other)
  Sender: FDA-Public Use
  Company Number: US-ELI_LILLY_AND_COMPANY-US200710002397

PATIENT
  Age: 89 Year
  Sex: Female
  Weight: 48.98 kg

DRUGS (2)
  1. ZYPREXA [Suspect]
     Dosage: 2.5 MG, 2/D
     Dates: start: 20060212
  2. LEVOTHYROXINE SODIUM [Concomitant]
     Indication: HYPOTHYROIDISM

REACTIONS (7)
  - ASTHENIA [None]
  - DIZZINESS [None]
  - FALL [None]
  - HOSPITALISATION [None]
  - PAIN [None]
  - SCREAMING [None]
  - WEIGHT INCREASED [None]
